FAERS Safety Report 12751425 (Version 4)
Quarter: 2018Q1

REPORT INFORMATION
  Report Type: Spontaneous
  Country: US (occurrence: US)
  Receive Date: 20160915
  Receipt Date: 20180102
  Transmission Date: 20180508
  Serious: Yes (Death, Hospitalization, Other)
  Sender: FDA-Public Use
  Company Number: US-ASTELLAS-2016US027659

PATIENT
  Age: 83 Year
  Sex: Male

DRUGS (1)
  1. XTANDI [Suspect]
     Active Substance: ENZALUTAMIDE
     Indication: PROSTATE CANCER
     Route: 048

REACTIONS (7)
  - Haematemesis [Unknown]
  - Product storage error [Unknown]
  - Pyrexia [Unknown]
  - Pyrexia [Not Recovered/Not Resolved]
  - Cough [Not Recovered/Not Resolved]
  - Death [Fatal]
  - Cerebral disorder [Unknown]

NARRATIVE: CASE EVENT DATE: 20170319
